FAERS Safety Report 6541275-2 (Version None)
Quarter: 2010Q1

REPORT INFORMATION
  Report Type: 
  Country: None (occurrence: None)
  Receive Date: 20100118
  Receipt Date: 20100113
  Transmission Date: 20100710
  Serious: Yes (Hospitalization, Other)
  Sender: FDA-Public Use
  Company Number: US-ELI_LILLY_AND_COMPANY-US200910001846

PATIENT
  Sex: Male

DRUGS (2)
  1. BYETTA [Suspect]
     Dosage: UNK, UNKNOWN
  2. BYETTA [Suspect]
     Dosage: UNK, UNKNOWN
     Dates: end: 20090101

REACTIONS (2)
  - GASTROINTESTINAL DISORDER [None]
  - PANCREATITIS [None]
